FAERS Safety Report 12440647 (Version 1)
Quarter: 2016Q2

REPORT INFORMATION
  Report Type: Spontaneous
  Country: US (occurrence: US)
  Receive Date: 20160606
  Receipt Date: 20160606
  Transmission Date: 20160815
  Serious: No
  Sender: FDA-Public Use
  Company Number: US-ASTRAZENECA-2016SE45709

PATIENT

DRUGS (1)
  1. BYETTA [Suspect]
     Active Substance: EXENATIDE
     Dosage: 10MCG, 250 MCG / 2.4 ML PEN,TWO TIMES A DAY
     Route: 058

REACTIONS (2)
  - Injection site extravasation [Unknown]
  - Underdose [Unknown]
